FAERS Safety Report 14850527 (Version 1)
Quarter: 2018Q2

REPORT INFORMATION
  Report Type: Report from Study
  Country: US (occurrence: US)
  Receive Date: 20180505
  Receipt Date: 20180505
  Transmission Date: 20180711
  Serious: Yes (Other)
  Sender: FDA-Public Use
  Company Number: US-MALLINCKRODT-T201800443

PATIENT
  Age: 84 Year
  Sex: Female

DRUGS (2)
  1. REPOSITORY CORTICOTROPIN INJECTION [Suspect]
     Active Substance: CORTICOTROPIN
     Indication: ULCERATIVE KERATITIS
     Dosage: UNK
     Route: 065
     Dates: start: 201705
  2. REPOSITORY CORTICOTROPIN INJECTION [Suspect]
     Active Substance: CORTICOTROPIN
     Indication: UVEITIS
     Dosage: 80 UNITS / 1 ML, EVERY 3 DAYS/EVERY 72 HOURS
     Route: 065
     Dates: start: 20180212

REACTIONS (12)
  - Weight decreased [Unknown]
  - Fall [Unknown]
  - Oral pain [Not Recovered/Not Resolved]
  - Herpes zoster [Not Recovered/Not Resolved]
  - Cushingoid [Not Recovered/Not Resolved]
  - Loss of personal independence in daily activities [Unknown]
  - Frustration tolerance decreased [Unknown]
  - Back pain [Not Recovered/Not Resolved]
  - Tooth infection [Recovering/Resolving]
  - Abdominal distension [Unknown]
  - Balance disorder [Unknown]
  - Weight increased [Recovering/Resolving]

NARRATIVE: CASE EVENT DATE: 201711
